FAERS Safety Report 4631450-6 (Version None)
Quarter: 2005Q2

REPORT INFORMATION
  Report Type: 
  Country: None (occurrence: None)
  Receive Date: 20050407
  Receipt Date: 20050325
  Transmission Date: 20051028
  Serious: Yes (Hospitalization, Other)
  Sender: FDA-Public Use
  Company Number: 2005050105

PATIENT
  Sex: Female
  Weight: 71.6683 kg

DRUGS (7)
  1. ZOLOFT [Suspect]
     Indication: DEPRESSION
     Dosage: 50 MG (50 MG, 1 IN 1 D), ORAL
     Route: 048
     Dates: start: 19970101
  2. DETROL LA [Suspect]
     Indication: POLLAKIURIA
     Dosage: 4 MG (4 MG, 1 IN 1 D), ORAL
     Route: 048
     Dates: start: 20040101
  3. LEVOTHYROXINE SODIUM [Suspect]
     Indication: THYROID DISORDER
  4. ALPRAZOLAM [Concomitant]
  5. CLOPIDOGREL BISULFATE [Concomitant]
  6. IRBESARTAN [Concomitant]
  7. ASPIRIN [Concomitant]

REACTIONS (11)
  - ANEURYSM [None]
  - ANXIETY [None]
  - BLOOD CHOLESTEROL INCREASED [None]
  - BLOOD POTASSIUM DECREASED [None]
  - BLOOD PRESSURE INCREASED [None]
  - CARDIAC DISORDER [None]
  - DEPRESSION [None]
  - DRY MOUTH [None]
  - PNEUMONIA [None]
  - POLLAKIURIA [None]
  - THYROID DISORDER [None]
